FAERS Safety Report 17840543 (Version 5)
Quarter: 2024Q3

REPORT INFORMATION
  Report Type: Spontaneous
  Country: US (occurrence: US)
  Receive Date: 20200529
  Receipt Date: 20240815
  Transmission Date: 20241016
  Serious: Yes (Other)
  Sender: PFIZER
  Company Number: US-PFIZER INC-2020197597

PATIENT
  Age: 74 Year
  Sex: Female

DRUGS (1)
  1. IBRANCE [Suspect]
     Active Substance: PALBOCICLIB
     Indication: Breast cancer female
     Dosage: 125 MG 3X7 UD TAB 21/125MG TABLETS DAILY FOR 21 DAYS ON; 7 DAYS OFF

REACTIONS (7)
  - Choking [Recovered/Resolved]
  - Product size issue [Unknown]
  - Drug intolerance [Recovering/Resolving]
  - Dysphagia [Unknown]
  - Intentional product misuse [Unknown]
  - Retching [Unknown]
  - Oropharyngeal pain [Not Recovered/Not Resolved]
